FAERS Safety Report 16379578 (Version 1)
Quarter: 2019Q2

REPORT INFORMATION
  Report Type: Spontaneous
  Country: FR (occurrence: FR)
  Receive Date: 20190531
  Receipt Date: 20190531
  Transmission Date: 20190711
  Serious: Yes (Death)
  Sender: FDA-Public Use
  Company Number: FR-MYLANLABS-2019M1050801

PATIENT
  Age: 88 Year
  Sex: Female
  Weight: 71.5 kg

DRUGS (10)
  1. AZARGA [Concomitant]
     Active Substance: BRINZOLAMIDE\TIMOLOL MALEATE
     Dosage: 2 GTT DROPS, QD
     Route: 047
  2. AMIODARONE [Concomitant]
     Active Substance: AMIODARONE
     Dosage: 400 MILLIGRAM, QD
     Route: 048
  3. CERNEVIT [Concomitant]
     Active Substance: VITAMINS
     Dosage: 1 DOSAGE FORM, QD
     Route: 041
  4. ORGARAN [Suspect]
     Active Substance: DANAPAROID SODIUM
     Indication: ANTICOAGULANT THERAPY
     Dosage: 1500 INTERNATIONAL UNIT
     Dates: start: 20180206, end: 20180226
  5. METFORMINE                         /00082701/ [Concomitant]
     Active Substance: METFORMIN HYDROCHLORIDE
     Dosage: 2550 MILLIGRAM, QD
     Route: 048
  6. INEXIUM                            /01479302/ [Concomitant]
     Active Substance: ESOMEPRAZOLE MAGNESIUM
     Dosage: 40 MILLIGRAM, QD
     Route: 048
  7. IRBESARTAN. [Suspect]
     Active Substance: IRBESARTAN
     Indication: PRODUCT USED FOR UNKNOWN INDICATION
     Dosage: 150 MILLIGRAM, QD
     Route: 048
  8. HYDROCHLOROTHIAZIDE. [Suspect]
     Active Substance: HYDROCHLOROTHIAZIDE
     Indication: PRODUCT USED FOR UNKNOWN INDICATION
     Dosage: 150 MILLIGRAM, QD
     Route: 048
  9. PREVISCAN                          /00789001/ [Suspect]
     Active Substance: FLUINDIONE
     Indication: ANTICOAGULANT THERAPY
     Dosage: 0.75 DOSAGE FORM, QD
     Route: 048
     Dates: end: 20180226
  10. SMOFKABIVEN [Concomitant]
     Active Substance: AMINO ACIDS\DEXTROSE\ELECTROLYTES NOS\SOYBEAN OIL
     Dosage: 1 UNK, QD
     Route: 041

REACTIONS (4)
  - International normalised ratio increased [Fatal]
  - Haematoma [Fatal]
  - Acute kidney injury [Fatal]
  - Shock haemorrhagic [Fatal]

NARRATIVE: CASE EVENT DATE: 20180218
